FAERS Safety Report 5669215-9 (Version None)
Quarter: 2008Q1

REPORT INFORMATION
  Report Type: 
  Country: None (occurrence: None)
  Receive Date: 20080317
  Receipt Date: 20080306
  Transmission Date: 20080703
  Serious: Yes (Other)
  Sender: FDA-Public Use
  Company Number: PHEH2008US02567

PATIENT
  Age: 64 Year
  Sex: Female

DRUGS (1)
  1. GENTEAL MODERATE LUBRICANT EYE DROPS (NVO) [Suspect]

REACTIONS (3)
  - CORNEAL ABRASION [None]
  - EYE PAIN [None]
  - OCULAR HYPERAEMIA [None]
